FAERS Safety Report 5563372-0 (Version None)
Quarter: 2007Q4

REPORT INFORMATION
  Report Type: 
  Country: None (occurrence: None)
  Receive Date: 20071212
  Receipt Date: 20071130
  Transmission Date: 20080405
  Serious: Yes (Hospitalization, Other)
  Sender: FDA-Public Use
  Company Number: 020550

PATIENT
  Age: 38 Year
  Sex: Female
  Weight: 54.4 kg

DRUGS (5)
  1. PLAN B [Suspect]
     Indication: CONTRACEPTION
     Dosage: 1 TABLET, Q12HR, ORAL
     Route: 048
     Dates: start: 20071025, end: 20071026
  2. ALPRAZOLAM [Concomitant]
  3. SOMA [Concomitant]
  4. SYNTHROID [Concomitant]
  5. TRAMADOL HCL [Concomitant]

REACTIONS (13)
  - ABDOMINAL PAIN [None]
  - ABDOMINAL PAIN UPPER [None]
  - BACK PAIN [None]
  - DRUG EXPOSURE BEFORE PREGNANCY [None]
  - DYSURIA [None]
  - FOETAL HEART RATE ABNORMAL [None]
  - MALAISE [None]
  - PAIN IN EXTREMITY [None]
  - POST PROCEDURAL COMPLICATION [None]
  - PYREXIA [None]
  - STOMACH DISCOMFORT [None]
  - THROMBOSIS [None]
  - UNINTENDED PREGNANCY [None]
